FAERS Safety Report 6500211-5 (Version None)
Quarter: 2009Q4

REPORT INFORMATION
  Report Type: 
  Country: None (occurrence: None)
  Receive Date: 20091127
  Receipt Date: 20090422
  Transmission Date: 20100525
  Serious: Yes (Other)
  Sender: FDA-Public Use
  Company Number: WAES 0708USA02440

PATIENT
  Age: 49 Year
  Sex: Female
  Weight: 85.2762 kg

DRUGS (3)
  1. FOSAMAX [Suspect]
     Indication: OSTEOPOROSIS
     Dosage: 70 MG/WKY/PO
     Route: 048
     Dates: start: 20030101, end: 20070219
  2. ACTONEL [Suspect]
     Indication: OSTEOPOROSIS
     Dosage: 35 MG/PO
     Route: 048
     Dates: start: 20030101, end: 20060101
  3. ACTONEL [Suspect]
     Indication: OSTEOPOROSIS
     Dosage: 35 MG/PO
     Route: 048
     Dates: start: 20070101

REACTIONS (14)
  - CHRONIC OBSTRUCTIVE PULMONARY DISEASE [None]
  - COSTOCHONDRITIS [None]
  - DEHYDRATION [None]
  - DRY MOUTH [None]
  - EAR INFECTION [None]
  - GINGIVAL DISORDER [None]
  - HEADACHE [None]
  - IMPAIRED HEALING [None]
  - LOOSE TOOTH [None]
  - OSTEONECROSIS [None]
  - PAIN IN EXTREMITY [None]
  - PERICARDITIS [None]
  - SINUSITIS [None]
  - THYROID DISORDER [None]
